FAERS Safety Report 25621551 (Version 1)
Quarter: 2025Q3

REPORT INFORMATION
  Report Type: Spontaneous
  Country: US (occurrence: US)
  Receive Date: 20250730
  Receipt Date: 20250730
  Transmission Date: 20251021
  Serious: Yes (Other)
  Sender: EMD SERONO INC
  Company Number: US-Merck Healthcare KGaA-2025037640

PATIENT
  Age: 41 Year
  Sex: Female

DRUGS (4)
  1. MAVENCLAD [Suspect]
     Active Substance: CLADRIBINE
     Indication: Multiple sclerosis
     Dates: start: 20240511, end: 20240515
  2. MAVENCLAD [Suspect]
     Active Substance: CLADRIBINE
     Dates: start: 20240607, end: 20240611
  3. MAVENCLAD [Suspect]
     Active Substance: CLADRIBINE
     Dates: start: 20250414
  4. MAVENCLAD [Suspect]
     Active Substance: CLADRIBINE
     Dates: start: 20250513

REACTIONS (7)
  - Optic neuritis [Recovered/Resolved]
  - Sleep disorder [Recovered/Resolved]
  - Speech disorder [Recovered/Resolved]
  - Vertigo [Recovered/Resolved]
  - Fatigue [Recovered/Resolved]
  - Asthenia [Recovered/Resolved]
  - Sexual dysfunction [Recovered/Resolved]

NARRATIVE: CASE EVENT DATE: 20250410
